FAERS Safety Report 24906746 (Version 1)
Quarter: 2025Q1

REPORT INFORMATION
  Report Type: Spontaneous
  Country: US (occurrence: US)
  Receive Date: 20250130
  Receipt Date: 20250130
  Transmission Date: 20250409
  Serious: No
  Sender: SANOFI AVENTIS
  Company Number: US-SA-2025SA027159

PATIENT
  Age: 67 Year
  Sex: Male

DRUGS (2)
  1. ELOCTATE [Suspect]
     Active Substance: EFMOROCTOCOG ALFA
     Dosage: 5000 IU, QD
     Route: 042
  2. ELOCTATE [Suspect]
     Active Substance: EFMOROCTOCOG ALFA
     Dosage: 5000 IU, QD
     Route: 042

REACTIONS (2)
  - Limb injury [Unknown]
  - Fall [Unknown]

NARRATIVE: CASE EVENT DATE: 20241222
